FAERS Safety Report 6803077-9 (Version None)
Quarter: 2010Q2

REPORT INFORMATION
  Report Type: 
  Country: None (occurrence: None)
  Receive Date: 20100628
  Receipt Date: 20100616
  Transmission Date: 20101027
  Serious: Yes (Hospitalization)
  Sender: FDA-Public Use
  Company Number: AU-SANOFI-AVENTIS-2010SA034671

PATIENT
  Age: 65 Year
  Sex: Male

DRUGS (19)
  1. OXALIPLATIN [Suspect]
     Indication: RECTAL CANCER
     Route: 042
     Dates: start: 20100104, end: 20100104
  2. OXALIPLATIN [Suspect]
     Route: 042
     Dates: start: 20100531, end: 20100531
  3. CAPECITABINE [Suspect]
     Indication: RECTAL CANCER
     Route: 048
     Dates: start: 20100104
  4. CAPECITABINE [Suspect]
     Route: 048
     Dates: start: 20100531
  5. MAXOLON [Concomitant]
     Indication: NAUSEA
     Route: 042
  6. LOPERAMIDE [Concomitant]
     Route: 048
     Dates: end: 20100621
  7. NIVAZEPAM [Concomitant]
     Indication: INSOMNIA
     Route: 048
  8. OLANZAPINE [Concomitant]
     Indication: ANTIDEPRESSANT THERAPY
     Route: 048
  9. FENTANYL [Concomitant]
     Dosage: PATIENT CONTROLLED ANALGESIA
     Route: 042
     Dates: start: 20100621
  10. NITRAZEPAM [Concomitant]
     Dates: end: 20100616
  11. CLEXANE [Concomitant]
     Route: 058
  12. ESOMEPRAZOLE [Concomitant]
     Route: 042
     Dates: start: 20100621
  13. OMEPRAZOLE [Concomitant]
     Route: 048
     Dates: start: 20100618, end: 20100621
  14. OMEPRAZOLE [Concomitant]
     Route: 042
     Dates: start: 20100622
  15. CARMELLOSE [Concomitant]
     Dates: start: 20100616
  16. SODIUM BICARBONATE [Concomitant]
     Indication: THERAPEUTIC GARGLE
     Route: 049
     Dates: start: 20100615
  17. ENOXOLONE/HYALURONATE SODIUM/POLYVIDONE [Concomitant]
     Route: 049
     Dates: start: 20100615
  18. NYSTATIN [Concomitant]
     Route: 049
     Dates: start: 20100615
  19. LIDOCAINE HCL VISCOUS [Concomitant]
     Route: 049
     Dates: start: 20100615

REACTIONS (5)
  - DECREASED APPETITE [None]
  - DIARRHOEA [None]
  - DUODENAL PERFORATION [None]
  - NAUSEA [None]
  - VOMITING [None]
